FAERS Safety Report 18106961 (Version 2)
Quarter: 2020Q3

REPORT INFORMATION
  Report Type: Spontaneous
  Country: US (occurrence: US)
  Receive Date: 20200803
  Receipt Date: 20200814
  Transmission Date: 20201103
  Serious: No
  Sender: FDA-Public Use
  Company Number: US-SA-2020SA200269

PATIENT

DRUGS (1)
  1. LOVENOX [Suspect]
     Active Substance: ENOXAPARIN SODIUM
     Indication: CATHETERISATION CARDIAC
     Dosage: 100 MG, Q12H
     Route: 065

REACTIONS (3)
  - Device breakage [Unknown]
  - Device leakage [Unknown]
  - Needle issue [Unknown]
